FAERS Safety Report 6565425-7 (Version None)
Quarter: 2010Q1

REPORT INFORMATION
  Report Type: 
  Country: None (occurrence: None)
  Receive Date: 20100201
  Receipt Date: 20100122
  Transmission Date: 20100710
  Serious: Yes (Death, Hospitalization)
  Sender: FDA-Public Use
  Company Number: PHHY2010PL03615

PATIENT
  Sex: Female

DRUGS (1)
  1. EXELON [Suspect]

REACTIONS (3)
  - DEATH [None]
  - MINI MENTAL STATUS EXAMINATION ABNORMAL [None]
  - MUSCULOSKELETAL STIFFNESS [None]
